FAERS Safety Report 7962072-7 (Version None)
Quarter: 2011Q4

REPORT INFORMATION
  Report Type: 
  Country: None (occurrence: None)
  Receive Date: 20111207
  Receipt Date: 20111130
  Transmission Date: 20120403
  Serious: Yes (Hospitalization)
  Sender: FDA-Public Use
  Company Number: JP-UCBSA-046855

PATIENT
  Age: 60 Year
  Sex: Male
  Weight: 63 kg

DRUGS (2)
  1. DEPAKENE [Concomitant]
     Indication: SIMPLE PARTIAL SEIZURES
     Dosage: DAILY DOSE: 800MG
     Route: 048
     Dates: end: 20111027
  2. KEPPRA [Suspect]
     Indication: SIMPLE PARTIAL SEIZURES
     Dosage: AFTER MEAL
     Route: 048
     Dates: start: 20110721, end: 20111027

REACTIONS (1)
  - DIABETIC HYPERGLYCAEMIC COMA [None]
